FAERS Safety Report 11368870 (Version 3)
Quarter: 2016Q1

REPORT INFORMATION
  Report Type: Spontaneous
  Country: FR (occurrence: FR)
  Receive Date: 20150812
  Receipt Date: 20160107
  Transmission Date: 20160525
  Serious: Yes (Other)
  Sender: FDA-Public Use
  Company Number: FR-ROCHE-1620264

PATIENT
  Age: 20 Year
  Sex: Female

DRUGS (1)
  1. ROACTEMRA [Suspect]
     Active Substance: TOCILIZUMAB
     Indication: JUVENILE IDIOPATHIC ARTHRITIS
     Dosage: 3 INJECTIONS IN TOTAL (3 DF)?SHE RECEIVED THE INFUSION ON 11/JUL/2015
     Route: 058
     Dates: start: 20150704, end: 20150718

REACTIONS (1)
  - Gingivitis ulcerative [Recovered/Resolved]

NARRATIVE: CASE EVENT DATE: 20150723
